FAERS Safety Report 13422500 (Version 1)
Quarter: 2017Q2

REPORT INFORMATION
  Report Type: Spontaneous
  Country: US (occurrence: US)
  Receive Date: 20170410
  Receipt Date: 20170410
  Transmission Date: 20170830
  Serious: Yes (Other)
  Sender: FDA-Public Use
  Company Number: None

PATIENT
  Sex: Female

DRUGS (6)
  1. QUICK RELIEF INHALER [Concomitant]
  2. PREDNISOLONE. [Concomitant]
     Active Substance: PREDNISOLONE
  3. FLINTSTONES VITAMINS [Concomitant]
  4. QVAR [Suspect]
     Active Substance: BECLOMETHASONE DIPROPIONATE
     Indication: ASTHMA
     Dosage: 120 INHALATION(S); TWICE A DAY RESPIRATORY (INHALATION)?
     Route: 055
     Dates: start: 20170324, end: 20170409
  5. CULTURELLE BRAND PROBIOTICS [Concomitant]
  6. HUMIRA [Concomitant]
     Active Substance: ADALIMUMAB

REACTIONS (1)
  - Aggression [None]
